FAERS Safety Report 7001213-5 (Version None)
Quarter: 2010Q3

REPORT INFORMATION
  Report Type: 
  Country: None (occurrence: None)
  Receive Date: 20100920
  Receipt Date: 20090729
  Transmission Date: 20110219
  Serious: No
  Sender: FDA-Public Use
  Company Number: US-ASTRAZENECA-2007UW12250

PATIENT
  Age: 16804 Day
  Sex: Female
  Weight: 126.1 kg

DRUGS (20)
  1. SEROQUEL [Suspect]
     Indication: DEPRESSION
     Route: 048
     Dates: start: 20021001, end: 20041001
  2. SEROQUEL [Suspect]
     Indication: HALLUCINATION, VISUAL
     Route: 048
     Dates: start: 20021001, end: 20041001
  3. SEROQUEL [Suspect]
     Indication: SLEEP DISORDER
     Route: 048
     Dates: start: 20021001, end: 20041001
  4. SEROQUEL [Suspect]
     Dosage: 50 TO 300 MG
     Route: 048
     Dates: start: 20021023
  5. SEROQUEL [Suspect]
     Dosage: 50 TO 300 MG
     Route: 048
     Dates: start: 20021023
  6. SEROQUEL [Suspect]
     Dosage: 50 TO 300 MG
     Route: 048
     Dates: start: 20021023
  7. ABILIFY [Concomitant]
     Dates: start: 20050101
  8. ZOCOR [Concomitant]
     Indication: HYPERCHOLESTEROLAEMIA
     Dates: start: 20010920
  9. ZOCOR [Concomitant]
     Indication: HYPERLIPIDAEMIA
     Dates: start: 20010920
  10. RESTORIL [Concomitant]
     Indication: SLEEP DISORDER
     Dosage: 30 TO 240 MG, AT NIGHT
     Dates: start: 20000802
  11. VICODIN [Concomitant]
     Indication: MIGRAINE
     Dosage: 10/500 AS REQUIRED
     Dates: start: 20000804
  12. SERZONE [Concomitant]
     Indication: MENTAL DISORDER
     Dates: start: 19910802
  13. ATIVAN [Concomitant]
     Indication: ANXIETY
     Dosage: 0.5 TO 1 MG AT NIGHT
  14. ATIVAN [Concomitant]
     Indication: AGITATION
     Dosage: 0.5 TO 1 MG AT NIGHT
  15. ELAVIL [Concomitant]
     Indication: INSOMNIA
     Dosage: 25 TO 75 MG
     Dates: start: 20010827
  16. SUMATRIPTAN [Concomitant]
     Indication: HEADACHE
     Route: 048
     Dates: start: 20030530
  17. TRAZODONE HCL [Concomitant]
     Indication: INSOMNIA
     Dosage: 50 TO 100 MG AS REQUIRED
     Dates: start: 20030530
  18. EFFEXOR [Concomitant]
     Indication: DEPRESSION
     Dosage: 150 TO 300 MG
     Route: 048
     Dates: start: 19990101
  19. LIPITOR [Concomitant]
     Indication: HYPERLIPIDAEMIA
     Dates: start: 20040801
  20. HALDOL [Concomitant]
     Indication: HALLUCINATION
     Dosage: 0.5 TO 2 MG
     Dates: start: 20030530

REACTIONS (4)
  - ABNORMAL WEIGHT GAIN [None]
  - BLOOD TRIGLYCERIDES INCREASED [None]
  - OBESITY [None]
  - TYPE 2 DIABETES MELLITUS [None]
